FAERS Safety Report 17075156 (Version 10)
Quarter: 2020Q2

REPORT INFORMATION
  Report Type: Report from Study
  Country: JP (occurrence: JP)
  Receive Date: 20191126
  Receipt Date: 20200416
  Transmission Date: 20200713
  Serious: Yes (Hospitalization)
  Sender: FDA-Public Use
  Company Number: JP-EISAI MEDICAL RESEARCH-EC-2019-065934

PATIENT
  Age: 78 Year
  Sex: Male
  Weight: 71.8 kg

DRUGS (20)
  1. PEMBROLIZUMAB. [Suspect]
     Active Substance: PEMBROLIZUMAB
     Indication: HEPATOCELLULAR CARCINOMA
     Route: 041
     Dates: start: 20190702, end: 20191001
  2. LENVATINIB [Suspect]
     Active Substance: LENVATINIB
     Route: 048
     Dates: start: 20191021
  3. TELMISARTAN. [Concomitant]
     Active Substance: TELMISARTAN
     Dates: start: 199101, end: 20191110
  4. GASTER [Concomitant]
     Active Substance: FAMOTIDINE
     Dates: start: 200901
  5. ANPLAG [Concomitant]
     Active Substance: SARPOGRELATE
     Dates: start: 200301
  6. LOPERAMIDE HYDROCHLORIDE. [Concomitant]
     Active Substance: LOPERAMIDE HYDROCHLORIDE
     Dates: start: 20191021, end: 20200113
  7. LENVATINIB [Suspect]
     Active Substance: LENVATINIB
     Indication: HEPATOCELLULAR CARCINOMA
     Dosage: STARTING DOSE AT 12 MG, FLUCTUATED DOSES
     Route: 048
     Dates: start: 20190702, end: 20191020
  8. KERATINAMIN [Concomitant]
     Active Substance: UREA
     Dates: start: 20190703
  9. SPIRONOLACTONE. [Concomitant]
     Active Substance: SPIRONOLACTONE
     Dates: start: 20190730, end: 20191120
  10. SENNOSIDES. [Concomitant]
     Active Substance: SENNOSIDES
     Dates: start: 20190814
  11. THYRADIN-S [Concomitant]
     Active Substance: LEVOTHYROXINE
     Dates: start: 20190911, end: 20191111
  12. URSA TABLETS [Concomitant]
     Dates: start: 200901
  13. HIRUDOID [Concomitant]
     Active Substance: GLYCOSAMINOGLYCANS
     Dates: start: 20190703
  14. FEBURIC [Concomitant]
     Active Substance: FEBUXOSTAT
     Dates: start: 200901
  15. AMLODIPINE [Concomitant]
     Active Substance: AMLODIPINE BESYLATE
     Dates: start: 20190709, end: 20191120
  16. PEMBROLIZUMAB. [Suspect]
     Active Substance: PEMBROLIZUMAB
     Route: 041
     Dates: start: 20191021, end: 20191021
  17. PEMBROLIZUMAB. [Suspect]
     Active Substance: PEMBROLIZUMAB
     Route: 041
     Dates: start: 20191114, end: 20200225
  18. MEVALOTIN [Concomitant]
     Active Substance: PRAVASTATIN SODIUM
     Dates: start: 200901
  19. RIFXIMA [Concomitant]
     Active Substance: RIFAXIMIN
     Dates: start: 20190706
  20. L CARTIN FF [Concomitant]
     Active Substance: LEVOCARNITINE
     Dates: start: 20190706

REACTIONS (1)
  - Dehydration [Recovered/Resolved]

NARRATIVE: CASE EVENT DATE: 20191111
